FAERS Safety Report 9295170 (Version 1)
Quarter: 2013Q2

REPORT INFORMATION
  Report Type: Report from Study
  Country: US (occurrence: US)
  Receive Date: 20130517
  Receipt Date: 20130517
  Transmission Date: 20140414
  Serious: Yes (Hospitalization, Other)
  Sender: FDA-Public Use
  Company Number: US-ROCHE-1223973

PATIENT
  Sex: Male

DRUGS (2)
  1. NUTROPIN AQ [Suspect]
     Indication: HYPOPITUITARISM
     Dosage: 0.4 MG, ONCE EVERY 7 TO 10 DAYS (0.4 MG,1 IN 7 D)
     Route: 058
     Dates: start: 2012, end: 20130510
  2. NUTROPIN AQ [Suspect]
     Indication: OFF LABEL USE

REACTIONS (8)
  - Localised infection [Unknown]
  - Toe amputation [Unknown]
  - Blood glucose fluctuation [Not Recovered/Not Resolved]
  - Blood glucose increased [Not Recovered/Not Resolved]
  - Feeling abnormal [Not Recovered/Not Resolved]
  - Depression [Not Recovered/Not Resolved]
  - Inappropriate schedule of drug administration [Unknown]
  - Expired drug administered [Unknown]
